FAERS Safety Report 8162967-8 (Version None)
Quarter: 2012Q1

REPORT INFORMATION
  Report Type: 
  Country: None (occurrence: None)
  Receive Date: 20120224
  Receipt Date: 20120216
  Transmission Date: 20120608
  Serious: Yes (Hospitalization, Other)
  Sender: FDA-Public Use
  Company Number: US-BAYER-200940576NA

PATIENT
  Age: 62 Year
  Sex: Male
  Weight: 136.5 kg

DRUGS (44)
  1. RED BLOOD CELLS [Concomitant]
     Dosage: 1 U, UNK
  2. INSULIN [Concomitant]
     Dosage: 25 U
     Route: 042
     Dates: start: 20050624
  3. CONTRAST MEDIA [Concomitant]
     Dosage: UNK
     Dates: start: 20050616
  4. PROTAMINE SULFATE [Concomitant]
  5. PLATELETS [Concomitant]
     Dosage: 1 U, UNK
  6. INSULIN [Concomitant]
     Dosage: UNK
     Route: 058
  7. STUDY DRUG [Concomitant]
     Dosage: 25 ML/HR
     Route: 042
     Dates: start: 20050624
  8. TRASYLOL [Suspect]
     Dosage: 1 ML, TEST DOSE
     Route: 042
     Dates: start: 20050624, end: 20050624
  9. TRASYLOL [Suspect]
     Dosage: 50 CC/ HOUR
     Dates: start: 20050624, end: 20050624
  10. LASIX [Concomitant]
     Dosage: 80 MG, QD
     Route: 048
  11. ZOCOR [Concomitant]
     Dosage: 5 MG, UNK
  12. GLIPIZIDE [Concomitant]
     Dosage: 10 MG, QD
     Route: 048
  13. ACTOS [Concomitant]
     Dosage: 45 MG, QD
     Route: 048
  14. THEO-DUR [Concomitant]
     Dosage: 400 MG, UNK
     Route: 048
  15. EPHEDRINE SUL CAP [Concomitant]
     Dosage: 5 MCG, UNK
     Route: 042
     Dates: start: 20050624
  16. TRASYLOL [Suspect]
     Indication: CORONARY ARTERY BYPASS
     Route: 042
     Dates: start: 20050501
  17. VANCOMYCIN [Concomitant]
     Dosage: UNK
     Dates: start: 20050628
  18. CEPHALEXIN [Concomitant]
     Dosage: UNK
     Dates: start: 20050616, end: 20050619
  19. FRESH FROZEN PLASMA [Concomitant]
     Dosage: 2 U, UNK
  20. LISINOPRIL [Concomitant]
     Route: 048
  21. VERSED [Concomitant]
     Dosage: 20 MG, UNK
     Route: 042
     Dates: start: 20050624
  22. ALBUTEROL [Concomitant]
     Dosage: UNK
     Dates: start: 20050624
  23. AMINOPHYLLINE [Concomitant]
     Dosage: UNK
     Route: 042
     Dates: start: 20050624
  24. SOLU-CORTEF [Concomitant]
     Dosage: 100 MG, UNK
     Route: 042
     Dates: start: 20050624
  25. TRASYLOL [Suspect]
     Dosage: 200 CC LOADING DOSE
     Dates: start: 20050624, end: 20050624
  26. INSULIN [Concomitant]
     Dosage: 10 U /HR
     Route: 042
     Dates: start: 20050624
  27. SINGULAIR [Concomitant]
     Dosage: 10 MG, QD
     Route: 048
  28. ANCEF [Concomitant]
     Dosage: 2 G, UNK
     Route: 042
     Dates: start: 20050624
  29. UNCODEABLE ^INVESTIGATIONAL DRUG^ [Concomitant]
     Dosage: 140 ML OVER 10 MINUTES
     Route: 042
     Dates: start: 20050624
  30. ACETYLSALICYLIC ACID SRT [Concomitant]
     Dosage: 325 MG, QD
     Route: 048
  31. LASIX [Concomitant]
     Dosage: 40 MG, UNK
     Route: 042
     Dates: start: 20050624
  32. ZYRTEC [Concomitant]
     Dosage: 10 MG, QD
     Route: 048
  33. ZEMURON [Concomitant]
     Dosage: 50 MG, UNK
     Route: 042
     Dates: start: 20050624
  34. SUCCINYLCHOLINE CHLORIDE [Concomitant]
     Dosage: 140 MG, UNK
     Route: 042
     Dates: start: 20050624
  35. PHENYLEPHRINE [Concomitant]
     Dosage: UNK
     Route: 042
     Dates: start: 20050624
  36. FORANE [Concomitant]
     Dosage: UNK
     Dates: start: 20050624
  37. NITROGLYCERIN [Concomitant]
     Dosage: UNK
     Route: 042
     Dates: start: 20050624
  38. SUFENTANIL CITRATE [Concomitant]
     Dosage: 250 MG, UNK
     Route: 042
     Dates: start: 20050624
  39. HEPARIN [Concomitant]
     Dosage: 53000 U, UNK
     Route: 042
     Dates: start: 20050624
  40. DOPAMINE HCL [Concomitant]
     Dosage: UNK
     Route: 042
     Dates: start: 20050624
  41. PRIMO-CABG II [Concomitant]
     Dosage: UNK
     Route: 042
     Dates: start: 20050624
  42. DILTIAZEM HCL [Concomitant]
     Dosage: 240 MG, QD
     Route: 048
  43. ADVAIR DISKUS 100/50 [Concomitant]
     Dosage: UNK UNK, BID
  44. ETOMIDATE [Concomitant]
     Dosage: UNK
     Route: 042
     Dates: start: 20050624

REACTIONS (11)
  - EMOTIONAL DISTRESS [None]
  - ANHEDONIA [None]
  - INJURY [None]
  - RENAL FAILURE [None]
  - UNEVALUABLE EVENT [None]
  - PAIN [None]
  - STRESS [None]
  - RENAL IMPAIRMENT [None]
  - RENAL INJURY [None]
  - FEAR [None]
  - ANXIETY [None]
